FAERS Safety Report 7146751-X (Version None)
Quarter: 2010Q4

REPORT INFORMATION
  Report Type: 
  Country: None (occurrence: None)
  Receive Date: 20101208
  Receipt Date: 20101109
  Transmission Date: 20110411
  Serious: Yes (Other)
  Sender: FDA-Public Use
  Company Number: FI-AMGEN-FINSP2010005179

PATIENT

DRUGS (6)
  1. ENBREL [Suspect]
     Indication: PSORIATIC ARTHROPATHY
     Dosage: 50 MG, WEEKLY
     Route: 058
     Dates: start: 20100302, end: 20100908
  2. TREXAN (METHOTREXATE) [Concomitant]
     Dosage: 15 MG, WEEKLY
     Route: 048
  3. ARTHROTEC [Concomitant]
     Dosage: AS NEEDED
  4. ARCOXIA [Concomitant]
     Dosage: AS NEEDED
  5. PANADOL FORTE [Concomitant]
     Dosage: AS NEEDED
  6. FOLIC ACID [Concomitant]
     Dosage: 5 MG, WEEKLY

REACTIONS (4)
  - BLOOD CREATINE PHOSPHOKINASE INCREASED [None]
  - DYSPHAGIA [None]
  - MUSCULAR WEAKNESS [None]
  - POLYNEUROPATHY [None]
